FAERS Safety Report 7230583-8 (Version None)
Quarter: 2011Q1

REPORT INFORMATION
  Report Type: 
  Country: None (occurrence: None)
  Receive Date: 20110118
  Receipt Date: 20110110
  Transmission Date: 20110831
  Serious: Yes (Other)
  Sender: FDA-Public Use
  Company Number: PHHY2011FR02191

PATIENT
  Age: 11 Year
  Sex: Male

DRUGS (2)
  1. RITALIN [Suspect]
     Indication: AGITATION
     Dosage: 0.5 DF, BID
     Dates: start: 20101215
  2. RITALIN [Suspect]
     Indication: ATTENTION DEFICIT/HYPERACTIVITY DISORDER
     Dosage: 10 MG, BID

REACTIONS (1)
  - DERMATITIS BULLOUS [None]
